FAERS Safety Report 15110241 (Version 1)
Quarter: 2018Q3

REPORT INFORMATION
  Report Type: Spontaneous
  Country: HR (occurrence: HR)
  Receive Date: 20180705
  Receipt Date: 20180705
  Transmission Date: 20181010
  Serious: Yes (Other)
  Sender: FDA-Public Use
  Company Number: HR-PFIZER INC-2018269304

PATIENT
  Age: 28 Year
  Sex: Female

DRUGS (3)
  1. XANAX [Suspect]
     Active Substance: ALPRAZOLAM
     Dosage: 20 DF, UNK
     Route: 048
     Dates: start: 20180402, end: 20180402
  2. APAURIN [Suspect]
     Active Substance: DIAZEPAM
     Dosage: 25 MG, 1X/DAY (5X5 MG)
     Route: 048
     Dates: start: 20180402, end: 20180402
  3. MISAR /00595201/ [Suspect]
     Active Substance: ALPRAZOLAM
     Dosage: 10 DF, UNK
     Route: 048
     Dates: start: 20180402, end: 20180402

REACTIONS (4)
  - Intentional overdose [Unknown]
  - Suicide attempt [Unknown]
  - Somnolence [Unknown]
  - Toxicity to various agents [Unknown]

NARRATIVE: CASE EVENT DATE: 20180402
